FAERS Safety Report 19216562 (Version 1)
Quarter: 2021Q2

REPORT INFORMATION
  Report Type: Spontaneous
  Country: US (occurrence: US)
  Receive Date: 20210505
  Receipt Date: 20210505
  Transmission Date: 20210717
  Serious: No
  Sender: FDA-Public Use
  Company Number: None

PATIENT
  Age: 74 Year
  Sex: Male
  Weight: 90 kg

DRUGS (1)
  1. METHYLPREDNISOLONE (METHYLPREDNISOLONE 4MG TAB DOSEPAK, 21) [Suspect]
     Active Substance: METHYLPREDNISOLONE
     Indication: RASH
     Dosage: ?          OTHER FREQUENCY:UD;?
     Route: 048
     Dates: start: 20191009, end: 20191014

REACTIONS (2)
  - Skin exfoliation [None]
  - Rash [None]

NARRATIVE: CASE EVENT DATE: 20191024
